FAERS Safety Report 8216287-3 (Version None)
Quarter: 2012Q1

REPORT INFORMATION
  Report Type: 
  Country: None (occurrence: None)
  Receive Date: 20120316
  Receipt Date: 20120306
  Transmission Date: 20120608
  Serious: Yes (Hospitalization, Other)
  Sender: FDA-Public Use
  Company Number: PHHY2011BR80625

PATIENT
  Age: 35 Year
  Sex: Male

DRUGS (13)
  1. TRILEPTAL [Interacting]
  2. LEVOTHYROXINE SODIUM [Concomitant]
  3. CLOZAPINE [Suspect]
     Indication: BIPOLAR DISORDER
     Dosage: 100 MG PLUS 25 MG BID
  4. DEPAKOTE [Concomitant]
     Dosage: 500 MG
  5. DEPAKOTE [Concomitant]
     Dosage: 1500 MG
     Dates: start: 20110909
  6. INVEGA [Concomitant]
  7. ZYPREXA [Concomitant]
  8. CITALOPRAM HYDROBROMIDE [Concomitant]
     Dosage: 40 MG, UNK
  9. SEROQUEL [Concomitant]
  10. CLONAZEPAM [Concomitant]
  11. LAMICTAL [Concomitant]
     Dosage: 200 MG, UNK
  12. CITALOPRAM HYDROBROMIDE [Concomitant]
     Dosage: 2 TABS DAILY
  13. DEPAKOTE [Concomitant]
     Dosage: 1000 MG

REACTIONS (11)
  - EPISTAXIS [None]
  - ANAL HAEMORRHAGE [None]
  - HYPOTENSION [None]
  - CONVERSION DISORDER [None]
  - DELIRIUM [None]
  - NAUSEA [None]
  - HAEMORRHAGE [None]
  - VOMITING [None]
  - DRUG INTERACTION [None]
  - HAEMATOCHEZIA [None]
  - HALLUCINATION [None]
